FAERS Safety Report 20485422 (Version 1)
Quarter: 2022Q1

REPORT INFORMATION
  Report Type: Spontaneous
  Country: US (occurrence: None)
  Receive Date: 20220217
  Receipt Date: 20220217
  Transmission Date: 20220423
  Serious: Yes (Hospitalization, Disabling)
  Sender: FDA-Public Use
  Company Number: None

PATIENT
  Age: 62 Year
  Sex: Female
  Weight: 130.95 kg

DRUGS (9)
  1. LEVOFLOXACIN [Suspect]
     Active Substance: LEVOFLOXACIN
     Indication: Sinusitis
     Dosage: OTHER QUANTITY : 10 TABLET(S);?FREQUENCY : DAILY;?
     Route: 048
     Dates: start: 20210401, end: 20210407
  2. SYNTHROID [Concomitant]
     Active Substance: LEVOTHYROXINE SODIUM
  3. ASCORBIC ACID [Concomitant]
     Active Substance: ASCORBIC ACID
  4. Vitamins d [Concomitant]
  5. ZINC [Concomitant]
     Active Substance: ZINC
  6. MAGNESIUM [Concomitant]
     Active Substance: MAGNESIUM
  7. PROLINE [Concomitant]
     Active Substance: PROLINE
  8. CARNITINE [Concomitant]
     Active Substance: CARNITINE
  9. lysine sod [Concomitant]

REACTIONS (19)
  - Tendon pain [None]
  - Arthralgia [None]
  - Joint dislocation [None]
  - Foot fracture [None]
  - Joint dislocation [None]
  - Pain [None]
  - Tendon rupture [None]
  - Bedridden [None]
  - Wheelchair user [None]
  - Feeling abnormal [None]
  - Depression [None]
  - Feeling abnormal [None]
  - Confusional state [None]
  - Muscle atrophy [None]
  - Fatigue [None]
  - Asthenia [None]
  - Hormone level abnormal [None]
  - Blood glucose fluctuation [None]
  - Tendonitis [None]

NARRATIVE: CASE EVENT DATE: 20210401
